FAERS Safety Report 6978106-2 (Version None)
Quarter: 2010Q3

REPORT INFORMATION
  Report Type: 
  Country: None (occurrence: None)
  Receive Date: 20100913
  Receipt Date: 20100907
  Transmission Date: 20110219
  Serious: Yes (Other)
  Sender: FDA-Public Use
  Company Number: CHPA2010US14294

PATIENT
  Age: 70 Year
  Sex: Female
  Weight: 118.82 kg

DRUGS (2)
  1. TRANSDERM SCOP [Suspect]
     Indication: MOTION SICKNESS
     Dosage: 2 PATCHES AT ONCE
     Route: 062
     Dates: start: 20000101, end: 20000101
  2. COUMADIN [Concomitant]

REACTIONS (8)
  - ABASIA [None]
  - ATRIAL FIBRILLATION [None]
  - CEREBROVASCULAR ACCIDENT [None]
  - COLON CANCER STAGE IV [None]
  - DIZZINESS [None]
  - OVERDOSE [None]
  - SPEECH DISORDER [None]
  - TRANSIENT ISCHAEMIC ATTACK [None]
